FAERS Safety Report 22223502 (Version 12)
Quarter: 2024Q2

REPORT INFORMATION
  Report Type: Spontaneous
  Country: US (occurrence: US)
  Receive Date: 20230418
  Receipt Date: 20240528
  Transmission Date: 20240716
  Serious: Yes (Life-Threatening, Hospitalization, Other)
  Sender: FDA-Public Use
  Company Number: US-PFIZER INC-PV202300068584

PATIENT
  Age: 78 Year
  Sex: Female
  Weight: 73.03 kg

DRUGS (5)
  1. IBRANCE [Suspect]
     Active Substance: PALBOCICLIB
     Indication: Bone cancer
     Dosage: 75 MG
     Dates: start: 202304, end: 202305
  2. IBRANCE [Suspect]
     Active Substance: PALBOCICLIB
     Indication: Breast cancer metastatic
     Dosage: 125 MG, DAILY
     Dates: start: 202303, end: 202304
  3. IBRANCE [Suspect]
     Active Substance: PALBOCICLIB
     Dosage: 125 MG, CYCLIC (1 QD D1-21 Q28 DAYS)
     Route: 048
     Dates: start: 20230228, end: 20230516
  4. ANASTROZOLE [Concomitant]
     Active Substance: ANASTROZOLE
     Indication: Breast cancer
     Dosage: UNK
     Route: 048
     Dates: start: 20230228
  5. XGEVA [Concomitant]
     Active Substance: DENOSUMAB
     Dosage: UNK (Q 3MONTHS)

REACTIONS (13)
  - Illness [Unknown]
  - Blood electrolytes decreased [Unknown]
  - Renal disorder [Unknown]
  - Neutropenia [Recovered/Resolved]
  - Hypokalaemia [Recovered/Resolved]
  - Neoplasm progression [Unknown]
  - Pain in extremity [Unknown]
  - Fatigue [Unknown]
  - Diarrhoea [Unknown]
  - Decreased appetite [Unknown]
  - Pain in extremity [Unknown]
  - Rash [Unknown]
  - Drug intolerance [Unknown]

NARRATIVE: CASE EVENT DATE: 20230101
